FAERS Safety Report 11363990 (Version 1)
Quarter: 2015Q3

REPORT INFORMATION
  Report Type: Spontaneous
  Country: US (occurrence: None)
  Receive Date: 20150810
  Receipt Date: 20150810
  Transmission Date: 20151125
  Serious: No
  Sender: FDA-Public Use
  Company Number: None

PATIENT
  Age: 53 Year
  Sex: Female

DRUGS (1)
  1. TECFIDERA [Suspect]
     Active Substance: DIMETHYL FUMARATE
     Indication: MULTIPLE SCLEROSIS
     Route: 048
     Dates: start: 20150604, end: 20150806

REACTIONS (5)
  - Pruritus [None]
  - Scratch [None]
  - Condition aggravated [None]
  - Skin haemorrhage [None]
  - Urinary tract infection [None]

NARRATIVE: CASE EVENT DATE: 20150605
